FAERS Safety Report 21439494 (Version 5)
Quarter: 2023Q2

REPORT INFORMATION
  Report Type: Report from Study
  Country: FR (occurrence: FR)
  Receive Date: 20221011
  Receipt Date: 20230412
  Transmission Date: 20230721
  Serious: Yes (Death, Other)
  Sender: FDA-Public Use
  Company Number: FR-GILEAD-2022-0600905

PATIENT
  Age: 30 Year
  Sex: Female
  Weight: 46 kg

DRUGS (2)
  1. SACITUZUMAB GOVITECAN-HZIY [Suspect]
     Active Substance: SACITUZUMAB GOVITECAN-HZIY
     Indication: Triple negative breast cancer
     Dosage: UNK, C1D1
     Route: 050
  2. SACITUZUMAB GOVITECAN-HZIY [Suspect]
     Active Substance: SACITUZUMAB GOVITECAN-HZIY
     Dosage: UNK
     Route: 065
     Dates: end: 20220103

REACTIONS (3)
  - Disease progression [Fatal]
  - Thrombocytopenia [Unknown]
  - General physical condition abnormal [Fatal]

NARRATIVE: CASE EVENT DATE: 20211228
